FAERS Safety Report 13598082 (Version 2)
Quarter: 2017Q2

REPORT INFORMATION
  Report Type: Spontaneous
  Country: JP (occurrence: JP)
  Receive Date: 20170531
  Receipt Date: 20170612
  Transmission Date: 20170830
  Serious: Yes (Other)
  Sender: FDA-Public Use
  Company Number: JP-BAXALTA-2017BXJ004933

PATIENT
  Age: 9 Month
  Sex: Male

DRUGS (8)
  1. FEIBA [Suspect]
     Active Substance: ANTI-INHIBITOR COAGULANT COMPLEX
     Indication: HAEMOPHILIA A WITH ANTI FACTOR VIII
     Dosage: UNK
     Route: 042
  2. FEIBA [Suspect]
     Active Substance: ANTI-INHIBITOR COAGULANT COMPLEX
     Dosage: 1500 IU, EVERY 2 DY
     Route: 042
     Dates: start: 2014
  3. NOVOSEVEN [Concomitant]
     Active Substance: COAGULATION FACTOR VIIA RECOMBINANT HUMAN
     Dosage: 270 ?G/KG, 2X A WEEK
     Route: 065
     Dates: start: 2012, end: 2012
  4. NOVOSEVEN [Concomitant]
     Active Substance: COAGULATION FACTOR VIIA RECOMBINANT HUMAN
     Indication: HAEMOPHILIA A WITH ANTI FACTOR VIII
     Dosage: 270 ?G/KG, 1X A WEEK
     Route: 065
     Dates: start: 2012, end: 2012
  5. ADVATE [Suspect]
     Active Substance: ANTIHEMOPHILIC FACTOR, HUMAN RECOMBINANT
     Indication: FACTOR VIII DEFICIENCY
     Route: 042
  6. FEIBA [Suspect]
     Active Substance: ANTI-INHIBITOR COAGULANT COMPLEX
     Dosage: 1500 IU, 3X A WEEK
     Route: 042
     Dates: start: 2014, end: 2014
  7. CONFACT F [Suspect]
     Active Substance: ANTIHEMOPHILIC FACTOR HUMAN
     Indication: FACTOR VIII DEFICIENCY
     Dosage: DOSE NOT REPORTED, ADMINISTERED BEFORE ADVATE
     Route: 065
  8. FEIBA [Suspect]
     Active Substance: ANTI-INHIBITOR COAGULANT COMPLEX
     Dosage: 1500 IU, 2X A WEEK
     Route: 042
     Dates: start: 2012, end: 2014

REACTIONS (4)
  - Factor VIII inhibition [Unknown]
  - Haemarthrosis [Unknown]
  - Muscle haemorrhage [Unknown]
  - Haemophilic arthropathy [Unknown]

NARRATIVE: CASE EVENT DATE: 2009
